FAERS Safety Report 21181389 (Version 2)
Quarter: 2022Q3

REPORT INFORMATION
  Report Type: Report from Study
  Country: US (occurrence: US)
  Receive Date: 20220806
  Receipt Date: 20220811
  Transmission Date: 20221026
  Serious: No
  Sender: FDA-Public Use
  Company Number: US-SA-SAC20220729001683

PATIENT
  Age: 58 Year
  Sex: Male

DRUGS (2)
  1. DUPIXENT [Suspect]
     Active Substance: DUPILUMAB
     Indication: Asthma
     Dosage: 600 MG, 1X
     Route: 058
     Dates: start: 202207
  2. DUPIXENT [Suspect]
     Active Substance: DUPILUMAB
     Dosage: 300 MG, QOW
     Route: 058
     Dates: start: 202207

REACTIONS (7)
  - Swelling face [Unknown]
  - Muscle tightness [Unknown]
  - Injection site pruritus [Unknown]
  - Rash pruritic [Not Recovered/Not Resolved]
  - Injection site rash [Recovered/Resolved]
  - Joint stiffness [Not Recovered/Not Resolved]
  - Trismus [Recovering/Resolving]

NARRATIVE: CASE EVENT DATE: 20220701
